FAERS Safety Report 10066319 (Version 10)
Quarter: 2015Q1

REPORT INFORMATION
  Report Type: Report from Study
  Country: CA (occurrence: CA)
  Receive Date: 20140408
  Receipt Date: 20150329
  Transmission Date: 20150720
  Serious: Yes (Hospitalization)
  Sender: FDA-Public Use
  Company Number: PHHY2013CA109321

PATIENT
  Age: 49 Year
  Sex: Male

DRUGS (5)
  1. SANDOSTATIN LAR DEPOT [Suspect]
     Active Substance: OCTREOTIDE ACETATE
     Dosage: 30 MG, EVERY 4 WEEKS
     Route: 030
     Dates: start: 20140822
  2. SANDOSTATIN LAR DEPOT [Suspect]
     Active Substance: OCTREOTIDE ACETATE
     Indication: PANCREATITIS CHRONIC
     Dosage: 30 MG, EVERY 28 DAYS
     Route: 030
     Dates: start: 20130814
  3. INSULIN [Concomitant]
     Active Substance: INSULIN NOS
     Indication: PRODUCT USED FOR UNKNOWN INDICATION
     Route: 065
  4. SANDOSTATIN LAR DEPOT [Suspect]
     Active Substance: OCTREOTIDE ACETATE
     Dosage: 30 MG, EVERY 28 DAYS
     Route: 030
  5. SANDOSTATIN LAR DEPOT [Suspect]
     Active Substance: OCTREOTIDE ACETATE
     Dosage: 30 MG, EVERY 4 WEEKS
     Route: 030
     Dates: start: 20130909

REACTIONS (16)
  - Depressed level of consciousness [Unknown]
  - Asthenia [Unknown]
  - Blood insulin increased [Unknown]
  - Incision site infection [Unknown]
  - Blood pressure increased [Unknown]
  - Body temperature decreased [Unknown]
  - Nausea [Not Recovered/Not Resolved]
  - Hepatic enzyme increased [Unknown]
  - Vomiting [Not Recovered/Not Resolved]
  - Injection site pain [Recovered/Resolved]
  - Hyperglycaemia [Unknown]
  - Product use issue [Unknown]
  - Periumbilical abscess [Unknown]
  - Vision blurred [Not Recovered/Not Resolved]
  - Dizziness [Recovering/Resolving]
  - Hypoglycaemia [Unknown]

NARRATIVE: CASE EVENT DATE: 20130814
